FAERS Safety Report 17824643 (Version 1)
Quarter: 2020Q2

REPORT INFORMATION
  Report Type: Spontaneous
  Country: US (occurrence: US)
  Receive Date: 20200526
  Receipt Date: 20200526
  Transmission Date: 20200714
  Serious: Yes (Hospitalization)
  Sender: FDA-Public Use
  Company Number: US-BIOVITRUM-2020US2703

PATIENT
  Age: 11 Year
  Sex: Male

DRUGS (1)
  1. KINERET [Suspect]
     Active Substance: ANAKINRA
     Indication: HAEMOPHAGOCYTIC LYMPHOHISTIOCYTOSIS
     Route: 042

REACTIONS (3)
  - Serum ferritin increased [Unknown]
  - Fibrin D dimer increased [Unknown]
  - Off label use [Unknown]

NARRATIVE: CASE EVENT DATE: 202005
